FAERS Safety Report 12085569 (Version 3)
Quarter: 2016Q3

REPORT INFORMATION
  Report Type: Report from Study
  Country: US (occurrence: US)
  Receive Date: 20160217
  Receipt Date: 20160711
  Transmission Date: 20161109
  Serious: Yes (Death, Other)
  Sender: FDA-Public Use
  Company Number: US-VIIV HEALTHCARE LIMITED-US2016GSK021373

PATIENT
  Age: 0 Year
  Sex: Male

DRUGS (4)
  1. DOLUTEGRAVIR [Suspect]
     Active Substance: DOLUTEGRAVIR
     Indication: HIV INFECTION
     Dosage: 50 MG PER DAY
     Route: 064
     Dates: start: 20150731
  2. COCAINE [Suspect]
     Active Substance: COCAINE
     Indication: PRODUCT USED FOR UNKNOWN INDICATION
     Route: 064
  3. STRIBILD [Suspect]
     Active Substance: COBICISTAT\ELVITEGRAVIR\EMTRICITABINE\TENOFOVIR DISOPROXIL FUMARATE
     Indication: HIV INFECTION
     Dosage: 1 TAB/CAPS DAILY
     Route: 064
     Dates: end: 20150731
  4. TRUVADA [Suspect]
     Active Substance: EMTRICITABINE\TENOFOVIR DISOPROXIL FUMARATE
     Indication: HIV INFECTION
     Dosage: 1 TAB/CAPS DAILY
     Route: 064
     Dates: start: 20150731

REACTIONS (11)
  - Hypoperfusion [Fatal]
  - Ascites [Unknown]
  - Premature baby [Fatal]
  - Foetal growth restriction [Unknown]
  - Foetal exposure during pregnancy [Unknown]
  - Pleural effusion [Unknown]
  - Jaundice cholestatic [Fatal]
  - Low birth weight baby [Unknown]
  - Metabolic acidosis [Fatal]
  - Intraventricular haemorrhage neonatal [Fatal]
  - Neonatal respiratory distress syndrome [Fatal]

NARRATIVE: CASE EVENT DATE: 20150723
